FAERS Safety Report 25372344 (Version 1)
Quarter: 2025Q2

REPORT INFORMATION
  Report Type: Spontaneous
  Country: US (occurrence: US)
  Receive Date: 20250529
  Receipt Date: 20250529
  Transmission Date: 20250717
  Serious: Yes (Other)
  Sender: COOPERSURGICAL
  Company Number: US-COOPERSURGICAL, INC.-2025CPS004282

PATIENT
  Age: 43 Year
  Sex: Female
  Weight: 55.329 kg

DRUGS (1)
  1. PARAGARD T 380A [Suspect]
     Active Substance: COPPER
     Route: 015
     Dates: start: 20100325

REACTIONS (8)
  - Salpingectomy [Recovered/Resolved]
  - Reproductive complication associated with device [Not Recovered/Not Resolved]
  - Device breakage [Recovered/Resolved]
  - Foreign body in urogenital tract [Recovered/Resolved]
  - Complication of device removal [Recovered/Resolved]
  - Pain prophylaxis [Recovered/Resolved]
  - Infection prophylaxis [Recovered/Resolved]
  - Emotional disorder [Unknown]

NARRATIVE: CASE EVENT DATE: 20200123
